FAERS Safety Report 8179351-3 (Version None)
Quarter: 2012Q1

REPORT INFORMATION
  Report Type: 
  Country: None (occurrence: None)
  Receive Date: 20120302
  Receipt Date: 20120221
  Transmission Date: 20120608
  Serious: Yes (Other)
  Sender: FDA-Public Use
  Company Number: US-JNJFOC-20120211262

PATIENT
  Sex: Male
  Weight: 72.58 kg

DRUGS (3)
  1. RISPERDAL [Suspect]
     Route: 048
     Dates: start: 20120101, end: 20120118
  2. ASPIRIN [Concomitant]
     Indication: HEADACHE
     Route: 048
  3. RISPERDAL [Suspect]
     Indication: BIPOLAR DISORDER
     Route: 048

REACTIONS (2)
  - MENTAL DISORDER [None]
  - HYPERSOMNIA [None]
